FAERS Safety Report 24779901 (Version 1)
Quarter: 2024Q4

REPORT INFORMATION
  Report Type: Spontaneous
  Country: DE (occurrence: DE)
  Receive Date: 20241226
  Receipt Date: 20241226
  Transmission Date: 20250115
  Serious: Yes (Other)
  Sender: ABBVIE
  Company Number: DE-ABBVIE-6064072

PATIENT

DRUGS (1)
  1. GLECAPREVIR\PIBRENTASVIR [Suspect]
     Active Substance: GLECAPREVIR\PIBRENTASVIR
     Indication: Product used for unknown indication
     Route: 048
     Dates: start: 202411

REACTIONS (8)
  - Loss of consciousness [Unknown]
  - Nausea [Unknown]
  - Crying [Unknown]
  - Screaming [Unknown]
  - Aggression [Unknown]
  - Arthralgia [Unknown]
  - Headache [Unknown]
  - Depression [Unknown]

NARRATIVE: CASE EVENT DATE: 20240101
